FAERS Safety Report 8128544-X (Version None)
Quarter: 2012Q1

REPORT INFORMATION
  Report Type: 
  Country: None (occurrence: None)
  Receive Date: 20120210
  Receipt Date: 20111205
  Transmission Date: 20120608
  Serious: No
  Sender: FDA-Public Use
  Company Number: US-BRISTOL-MYERS SQUIBB COMPANY-16270027

PATIENT
  Age: 75 Year
  Sex: Female

DRUGS (2)
  1. ORENCIA [Suspect]
     Dosage: LAST INFUSION ON 21 NOV 2011. DOSE CHANGED.
  2. METHOTREXATE [Suspect]

REACTIONS (4)
  - URINARY TRACT INFECTION [None]
  - ARTHRITIS [None]
  - NASOPHARYNGITIS [None]
  - ORAL FUNGAL INFECTION [None]
